FAERS Safety Report 13548860 (Version 1)
Quarter: 2017Q2

REPORT INFORMATION
  Report Type: Spontaneous
  Country: US (occurrence: US)
  Receive Date: 20170516
  Receipt Date: 20170516
  Transmission Date: 20170830
  Serious: No
  Sender: FDA-Public Use
  Company Number: US-BION-005952

PATIENT
  Age: 16 Year
  Sex: Female

DRUGS (1)
  1. MEMBERS MARK IBUPROFEN 200 MG SOFTGEL BAN 200 + 200CT [Suspect]
     Active Substance: IBUPROFEN
     Indication: BACK PAIN
     Dosage: 1 SOFTGEL ??EVERY 4 TO 6 HOURS
     Route: 048

REACTIONS (3)
  - Chest discomfort [Unknown]
  - Self-medication [Not Recovered/Not Resolved]
  - Extrasystoles [Recovered/Resolved]
